FAERS Safety Report 23533532 (Version 3)
Quarter: 2024Q2

REPORT INFORMATION
  Report Type: Report from Study
  Country: CA (occurrence: CA)
  Receive Date: 20240216
  Receipt Date: 20240529
  Transmission Date: 20240715
  Serious: Yes (Other)
  Sender: FDA-Public Use
  Company Number: CA-002147023-NVSC2023CA255771

PATIENT
  Age: 50 Year
  Sex: Male

DRUGS (4)
  1. TAFINLAR [Suspect]
     Active Substance: DABRAFENIB MESYLATE
     Indication: Metastatic malignant melanoma
     Dosage: 150 MG, BID
     Route: 048
     Dates: start: 20231125
  2. TAFINLAR [Suspect]
     Active Substance: DABRAFENIB MESYLATE
     Indication: BRAF V600E mutation positive
  3. MEKINIST [Suspect]
     Active Substance: TRAMETINIB DIMETHYL SULFOXIDE
     Indication: BRAF V600E mutation positive
     Dosage: 2 MG, QD
     Route: 048
     Dates: start: 20231125
  4. MEKINIST [Suspect]
     Active Substance: TRAMETINIB DIMETHYL SULFOXIDE
     Indication: Metastatic malignant melanoma

REACTIONS (19)
  - Clostridium difficile colitis [Unknown]
  - Haematochezia [Unknown]
  - Prostate cancer [Unknown]
  - Taste disorder [Unknown]
  - Abdominal discomfort [Unknown]
  - Dysgeusia [Unknown]
  - Dry mouth [Unknown]
  - Headache [Unknown]
  - Fatigue [Unknown]
  - Nausea [Unknown]
  - Blood urine present [Unknown]
  - Diarrhoea [Unknown]
  - Hypoaesthesia [Unknown]
  - Paraesthesia [Unknown]
  - Irritability [Unknown]
  - Depressed mood [Unknown]
  - Frustration tolerance decreased [Unknown]
  - Urinary tract infection [Unknown]
  - Abdominal pain [Unknown]
